FAERS Safety Report 13642955 (Version 1)
Quarter: 2017Q2

REPORT INFORMATION
  Report Type: Spontaneous
  Country: DE (occurrence: DE)
  Receive Date: 20170612
  Receipt Date: 20170612
  Transmission Date: 20170830
  Serious: Yes (Other)
  Sender: FDA-Public Use
  Company Number: DE-TEVA-774550GER

PATIENT
  Age: 61 Year
  Sex: Female

DRUGS (11)
  1. MIRTAZAPIN [Suspect]
     Active Substance: MIRTAZAPINE
     Route: 048
     Dates: start: 20160921, end: 20160922
  2. AMLODIPIN [Concomitant]
     Active Substance: AMLODIPINE BESYLATE
     Route: 048
     Dates: start: 20161007
  3. HCT [Concomitant]
     Active Substance: HYDROCHLOROTHIAZIDE
     Dosage: SINCE YEARS
     Route: 048
  4. MIRTAZAPIN [Interacting]
     Active Substance: MIRTAZAPINE
     Route: 048
     Dates: start: 20160924
  5. TIMONIL [Interacting]
     Active Substance: CARBAMAZEPINE
     Route: 048
     Dates: start: 20161004
  6. AMLODIPIN [Concomitant]
     Active Substance: AMLODIPINE BESYLATE
     Dosage: SINCE YEARS
     Route: 048
     Dates: end: 20161006
  7. TIMONIL [Interacting]
     Active Substance: CARBAMAZEPINE
     Route: 048
     Dates: start: 20160929, end: 20161003
  8. MIRTAZAPIN [Interacting]
     Active Substance: MIRTAZAPINE
     Route: 048
     Dates: start: 20160923
  9. SPIROBATA [Concomitant]
     Dosage: SINCE YEARS
     Route: 048
  10. CANDESARTAN. [Concomitant]
     Active Substance: CANDESARTAN
     Dosage: SINCE YEARS
     Route: 048
  11. TIMONIL [Interacting]
     Active Substance: CARBAMAZEPINE
     Dosage: SINCE YEARS
     Route: 048
     Dates: end: 20160928

REACTIONS (2)
  - Drug interaction [Unknown]
  - Restless legs syndrome [Recovered/Resolved]

NARRATIVE: CASE EVENT DATE: 20161010
